FAERS Safety Report 9409300 (Version 1)
Quarter: 2013Q2

REPORT INFORMATION
  Report Type: Spontaneous
  Country: US (occurrence: None)
  Receive Date: 20130408
  Receipt Date: 20130408
  Transmission Date: 20140414
  Serious: No
  Sender: FDA-Public Use
  Company Number: AUR-APL-2009-00321

PATIENT
  Age: 52 Year
  Sex: Male
  Weight: 107.9 kg

DRUGS (6)
  1. MIRTAZAPINE (MIRTAZAPINE) [Suspect]
     Indication: DEPRESSION
     Route: 048
     Dates: start: 20081101, end: 20081231
  2. FLUOXETINE (FLUOXETINE) [Suspect]
     Indication: DEPRESSION
     Route: 048
     Dates: start: 20080405
  3. DIAZEPAM (DIAZEPAM) [Concomitant]
  4. RAMIPRIL (RAMIPRIL) [Concomitant]
  5. TEMAZEPAM (TEMAZEPAM) [Concomitant]
  6. VERAPAMIL (VERAPAMIL) [Concomitant]

REACTIONS (2)
  - Oedema peripheral [None]
  - Gait disturbance [None]
